FAERS Safety Report 12803231 (Version 1)
Quarter: 2016Q4

REPORT INFORMATION
  Report Type: Spontaneous
  Country: US (occurrence: US)
  Receive Date: 20161003
  Receipt Date: 20161003
  Transmission Date: 20170207
  Serious: No
  Sender: FDA-Public Use
  Company Number: US-MISSION PHARMACAL COMPANY-1057928

PATIENT
  Age: 54 Year
  Sex: Female

DRUGS (1)
  1. THIOLA [Suspect]
     Active Substance: TIOPRONIN
     Indication: CYSTINURIA
     Route: 065
     Dates: start: 20160803

REACTIONS (8)
  - Libido decreased [None]
  - Insomnia [Unknown]
  - Anxiety [Unknown]
  - Drug dose omission [Unknown]
  - Dry skin [None]
  - Fingerprint loss [Unknown]
  - Vulvovaginal discomfort [Unknown]
  - Fungal infection [Unknown]
